FAERS Safety Report 5826630-8 (Version None)
Quarter: 2008Q3

REPORT INFORMATION
  Report Type: 
  Country: None (occurrence: None)
  Receive Date: 20080730
  Receipt Date: 20080718
  Transmission Date: 20090109
  Serious: Yes (Other)
  Sender: FDA-Public Use
  Company Number: US-JNJFOC-20080704885

PATIENT
  Sex: Female
  Weight: 57.15 kg

DRUGS (7)
  1. REMICADE [Suspect]
     Route: 042
  2. REMICADE [Suspect]
     Route: 042
  3. REMICADE [Suspect]
     Route: 042
  4. REMICADE [Suspect]
     Indication: RHEUMATOID ARTHRITIS
     Route: 042
  5. PREDNISONE [Concomitant]
  6. METHOTREXATE [Concomitant]
  7. HYDROXYCHLOROQUINE SULFATE [Concomitant]

REACTIONS (1)
  - FOOT OPERATION [None]
